FAERS Safety Report 9119745 (Version 1)
Quarter: 2013Q1

REPORT INFORMATION
  Report Type: Spontaneous
  Country: DE (occurrence: DE)
  Receive Date: 20130207
  Receipt Date: 20130207
  Transmission Date: 20140127
  Serious: Yes (Hospitalization)
  Sender: FDA-Public Use
  Company Number: PHHY2013DE011210

PATIENT
  Sex: Male

DRUGS (11)
  1. METOPROLOL [Suspect]
     Dosage: 47.5 MG, UNK
     Route: 048
     Dates: start: 20130126
  2. METFORMIN [Suspect]
     Route: 048
     Dates: start: 20130126
  3. TORASEMIDE [Suspect]
     Route: 048
     Dates: start: 20130126
  4. ALLOPURINOL [Suspect]
     Route: 048
     Dates: start: 20130126
  5. ENALAPRIL [Suspect]
     Route: 048
     Dates: start: 20130126
  6. ACETYLCYSTEINE [Suspect]
     Route: 048
     Dates: start: 20130126
  7. PRAVASTATIN [Suspect]
     Route: 048
     Dates: start: 20130126
  8. ZANERIL [Suspect]
     Dosage: UNK UKN, UNK
     Route: 048
     Dates: start: 20130126
  9. AAS [Suspect]
     Dates: start: 20130126
  10. GLIMEPIRIDE [Suspect]
     Route: 048
     Dates: start: 20130126
  11. ETHANOL [Suspect]
     Dosage: (20 BOTTLES OF BEER AND WINE)
     Route: 048

REACTIONS (2)
  - Drug abuse [Unknown]
  - Alcohol poisoning [Unknown]
